FAERS Safety Report 4315362-3 (Version None)
Quarter: 2004Q1

REPORT INFORMATION
  Report Type: 
  Country: None (occurrence: None)
  Receive Date: 20040309
  Receipt Date: 20040225
  Transmission Date: 20041129
  Serious: Yes (Hospitalization, Other)
  Sender: FDA-Public Use
  Company Number: USA030742206

PATIENT
  Age: 72 Year
  Sex: Female
  Weight: 68 kg

DRUGS (16)
  1. FORTEO [Suspect]
     Indication: OSTEOPOROTIC FRACTURE
     Dosage: 20 UG/1 DAY
     Dates: start: 20030502
  2. CITRACAL (CALCIUM CITRATE) [Concomitant]
  3. HYTRIN [Concomitant]
  4. BEXTRA [Concomitant]
  5. VICODIN [Concomitant]
  6. PREDNISONE [Concomitant]
  7. FORADIL [Concomitant]
  8. FLOVENT [Concomitant]
  9. ALUPENT [Concomitant]
  10. BUMETANIDE [Concomitant]
  11. POTASSIUM [Concomitant]
  12. AMBIEN [Concomitant]
  13. COUMADIN [Concomitant]
  14. LANOXIN [Concomitant]
  15. TIAZAC [Concomitant]
  16. CALCIUM [Concomitant]

REACTIONS (4)
  - ARTHRITIS INFECTIVE [None]
  - DYSPNOEA [None]
  - FATIGUE [None]
  - HEART RATE INCREASED [None]
